FAERS Safety Report 4311039-9 (Version None)
Quarter: 2004Q1

REPORT INFORMATION
  Report Type: 
  Country: None (occurrence: None)
  Receive Date: 20040303
  Receipt Date: 20040303
  Transmission Date: 20041129
  Serious: No
  Sender: FDA-Public Use
  Company Number: None

PATIENT
  Age: 86 Year
  Sex: Female

DRUGS (11)
  1. AMIODARONE HCL-PACERONE- 200 MG UPSHER-SMITH [Suspect]
     Indication: ATRIAL FIBRILLATION
     Dosage: 400 MG BID ORAL
     Route: 048
     Dates: start: 20040207, end: 20040207
  2. ASPIRIN [Concomitant]
  3. COREG [Concomitant]
  4. GLYBURIDE [Concomitant]
  5. FERROUS SULFATE TAB [Concomitant]
  6. MULTI-VITAMIN [Concomitant]
  7. ZOCOR [Concomitant]
  8. LASIX [Concomitant]
  9. PROTONIX [Concomitant]
  10. DIOVAN [Concomitant]
  11. SOTALOL HCL [Concomitant]

REACTIONS (1)
  - RASH [None]
